FAERS Safety Report 12628920 (Version 1)
Quarter: 2016Q3

REPORT INFORMATION
  Report Type: Spontaneous
  Country: US (occurrence: None)
  Receive Date: 20160805
  Receipt Date: 20160805
  Transmission Date: 20161109
  Serious: No
  Sender: FDA-Public Use
  Company Number: None

PATIENT
  Age: 63 Year
  Sex: Female

DRUGS (1)
  1. CAPECITABINE TAB 500MG [Suspect]
     Active Substance: CAPECITABINE
     Indication: BREAST CANCER
     Dosage: 500MG TABLET 4 TABLETS EV PO
     Route: 048
     Dates: start: 20160602, end: 20160802

REACTIONS (2)
  - Skin discolouration [None]
  - Mouth swelling [None]

NARRATIVE: CASE EVENT DATE: 20160702
